FAERS Safety Report 17295504 (Version 1)
Quarter: 2020Q1

REPORT INFORMATION
  Report Type: Spontaneous
  Country: US (occurrence: US)
  Receive Date: 20200121
  Receipt Date: 20200121
  Transmission Date: 20200409
  Serious: Yes (Hospitalization, Other)
  Sender: FDA-Public Use
  Company Number: US-VERTEX PHARMACEUTICALS-2020-000693

PATIENT
  Age: 19 Year
  Sex: Female

DRUGS (24)
  1. COLISTIMETHATE [COLISTIMETHATE SODIUM] [Concomitant]
     Active Substance: COLISTIMETHATE SODIUM
  2. QUETIAPINE FUMARATE. [Concomitant]
     Active Substance: QUETIAPINE FUMARATE
  3. BOOST [Concomitant]
     Active Substance: DIETARY SUPPLEMENT
  4. DULCOLAX (BISACODYL) [Concomitant]
     Active Substance: BISACODYL
  5. FLOVENT [Concomitant]
     Active Substance: FLUTICASONE PROPIONATE
  6. AZITHROMYCIN ANHYDROUS. [Concomitant]
     Active Substance: AZITHROMYCIN ANHYDROUS
  7. CREON [Concomitant]
     Active Substance: PANCRELIPASE AMYLASE\PANCRELIPASE LIPASE\PANCRELIPASE PROTEASE
  8. ONDASETRON [ONDANSETRON] [Concomitant]
  9. SERTRALINE [Concomitant]
     Active Substance: SERTRALINE HYDROCHLORIDE
     Dosage: 25 MG
  10. CAYSTON [Concomitant]
     Active Substance: AZTREONAM
  11. TRIKAFTA [Suspect]
     Active Substance: ELEXACAFTOR\IVACAFTOR\TEZACAFTOR
     Indication: CYSTIC FIBROSIS
     Dosage: UNK
     Route: 048
     Dates: start: 2019
  12. CETIRIZINE [Concomitant]
     Active Substance: CETIRIZINE HYDROCHLORIDE
  13. DEXTROAMPHETAMINE [DEXAMFETAMINE] [Concomitant]
     Active Substance: DEXTROAMPHETAMINE
  14. DEKASOFT [Concomitant]
  15. ERGOCALCIFEROL. [Concomitant]
     Active Substance: ERGOCALCIFEROL
  16. PREDNISONE. [Concomitant]
     Active Substance: PREDNISONE
  17. PULMOZYME [Concomitant]
     Active Substance: DORNASE ALFA
  18. SYMBICORT [Concomitant]
     Active Substance: BUDESONIDE\FORMOTEROL FUMARATE DIHYDRATE
  19. FLUTICASONE. [Concomitant]
     Active Substance: FLUTICASONE
  20. OMEPRAZOLE. [Concomitant]
     Active Substance: OMEPRAZOLE
  21. TOBI PODHALER [Concomitant]
     Active Substance: TOBRAMYCIN
  22. DICLOFENAC [Concomitant]
     Active Substance: DICLOFENAC
  23. FISH OIL [Concomitant]
     Active Substance: FISH OIL
  24. SENNA [SENNA ALEXANDRINA] [Concomitant]
     Active Substance: SENNA LEAF

REACTIONS (2)
  - Suicidal ideation [Unknown]
  - Cystic fibrosis respiratory infection suppression [Unknown]

NARRATIVE: CASE EVENT DATE: 20200103
